FAERS Safety Report 12916022 (Version 1)
Quarter: 2016Q4

REPORT INFORMATION
  Report Type: Spontaneous
  Country: US (occurrence: US)
  Receive Date: 20161107
  Receipt Date: 20161107
  Transmission Date: 20170207
  Serious: No
  Sender: FDA-Public Use
  Company Number: US-AUROBINDO-AUR-APU-2016-05190

PATIENT
  Age: 64 Year
  Sex: Female

DRUGS (3)
  1. METOPROLOL TARTRATE TABLETS USP 100 MG [Suspect]
     Active Substance: METOPROLOL TARTRATE
     Indication: HYPERTENSION
     Dosage: I TABLET , TWO TIMES A DAY
     Route: 065
  2. METOPROLOL TARTRATE TABLETS USP 100 MG [Suspect]
     Active Substance: METOPROLOL TARTRATE
     Indication: HEART RATE INCREASED
  3. FUROSEMIDE. [Concomitant]
     Active Substance: FUROSEMIDE
     Dosage: 40 MG, UNK
     Route: 065

REACTIONS (5)
  - Headache [Unknown]
  - Abdominal pain upper [None]
  - Arthralgia [Unknown]
  - Nausea [Unknown]
  - Influenza like illness [Unknown]
